FAERS Safety Report 6388016-X (Version None)
Quarter: 2009Q4

REPORT INFORMATION
  Report Type: 
  Country: None (occurrence: None)
  Receive Date: 20091005
  Receipt Date: 20090921
  Transmission Date: 20100525
  Serious: Yes (Hospitalization)
  Sender: FDA-Public Use
  Company Number: ZA-MYLANLABS-2009S1016529

PATIENT
  Age: 9 Year
  Sex: Female
  Weight: 26 kg

DRUGS (9)
  1. FLUOXETINE [Suspect]
     Indication: DEPRESSION
  2. RITONAVIR [Interacting]
     Indication: HIV INFECTION
  3. ISONIAZID [Interacting]
     Indication: PULMONARY TUBERCULOSIS
  4. STAVUDINE [Concomitant]
     Indication: HIV INFECTION
  5. LAMIVUDINE [Concomitant]
     Indication: HIV INFECTION
  6. LOPINAVIR [Concomitant]
     Indication: HIV INFECTION
  7. RIFAMPICIN [Concomitant]
     Indication: PULMONARY TUBERCULOSIS
  8. PYRAZINAMIDE [Concomitant]
     Indication: PULMONARY TUBERCULOSIS
  9. ETHIONAMIDE [Concomitant]
     Indication: PULMONARY TUBERCULOSIS

REACTIONS (2)
  - DRUG INTERACTION [None]
  - SEROTONIN SYNDROME [None]
